FAERS Safety Report 8589839-9 (Version None)
Quarter: 2012Q3

REPORT INFORMATION
  Report Type: 
  Country: None (occurrence: None)
  Receive Date: 20120813
  Receipt Date: 20120731
  Transmission Date: 20120928
  Serious: Yes (Other)
  Sender: FDA-Public Use
  Company Number: JP-ROCHE-1097732

PATIENT
  Sex: Female

DRUGS (27)
  1. ACTEMRA [Suspect]
     Route: 041
     Dates: start: 20090109, end: 20090109
  2. ACTEMRA [Suspect]
     Route: 041
     Dates: start: 20090206, end: 20090206
  3. PROMAC [Concomitant]
     Indication: PROPHYLAXIS
     Route: 048
     Dates: end: 20090108
  4. ACTEMRA [Suspect]
     Route: 041
     Dates: start: 20081212, end: 20081212
  5. ACTEMRA [Suspect]
     Route: 041
     Dates: start: 20090724, end: 20090724
  6. GENTAMICIN SULFATE [Concomitant]
     Dates: start: 20091116, end: 20100611
  7. PROCYLIN [Concomitant]
     Route: 048
     Dates: start: 20091127
  8. ACTEMRA [Suspect]
     Route: 041
     Dates: start: 20090501, end: 20090501
  9. ACTEMRA [Suspect]
     Route: 041
     Dates: start: 20090626, end: 20090626
  10. ACTEMRA [Suspect]
     Route: 041
     Dates: start: 20090918, end: 20090918
  11. ACTEMRA [Suspect]
     Indication: RHEUMATOID ARTHRITIS
     Route: 041
     Dates: start: 20080919, end: 20080919
  12. ACTEMRA [Suspect]
     Route: 041
     Dates: start: 20081017, end: 20081017
  13. ALENDRONATE SODIUM [Concomitant]
     Indication: OSTEOPOROSIS
     Route: 048
  14. ANPLAG [Concomitant]
     Indication: THROMBOPHLEBITIS
     Route: 048
  15. ASPIRIN [Concomitant]
     Route: 048
     Dates: start: 20100115, end: 20100521
  16. ACTEMRA [Suspect]
     Route: 041
     Dates: start: 20090403, end: 20090403
  17. ACTEMRA [Suspect]
     Route: 041
     Dates: start: 20090821, end: 20090821
  18. VOLTAREN-XR [Concomitant]
     Indication: RHEUMATOID ARTHRITIS
     Route: 048
  19. NORVASC [Concomitant]
     Indication: HYPERTENSION
     Route: 048
     Dates: start: 20090403
  20. ALPROSTADIL [Concomitant]
     Dates: start: 20091113, end: 20091127
  21. ACTEMRA [Suspect]
     Route: 041
     Dates: start: 20081114, end: 20081114
  22. GEBEN CREAM [Concomitant]
     Dates: start: 20100820, end: 20110107
  23. ACTEMRA [Suspect]
     Route: 041
     Dates: start: 20091016, end: 20091016
  24. ACTEMRA [Suspect]
     Route: 041
     Dates: start: 20090306, end: 20090306
  25. ACTEMRA [Suspect]
     Route: 041
     Dates: start: 20090529, end: 20090529
  26. ALPROSTADIL [Concomitant]
     Dates: start: 20091116, end: 20100716
  27. FIBLAST [Concomitant]
     Dates: start: 20100115

REACTIONS (1)
  - SKIN ULCER [None]
